FAERS Safety Report 23088764 (Version 1)
Quarter: 2023Q4

REPORT INFORMATION
  Report Type: Report from Study
  Country: IT (occurrence: IT)
  Receive Date: 20231020
  Receipt Date: 20231020
  Transmission Date: 20240110
  Serious: Yes (Other)
  Sender: FDA-Public Use
  Company Number: None

PATIENT
  Age: 57 Year
  Sex: Female
  Weight: 113 kg

DRUGS (1)
  1. PACLITAXEL [Suspect]
     Active Substance: PACLITAXEL
     Indication: Breast cancer
     Dosage: REACTIONS AFTER I CYCLE - START OF THERAPY 16-AUG-2023 - WEEKLY THERAPY
     Dates: start: 20230816, end: 20230816

REACTIONS (4)
  - Haemoglobin decreased [Recovering/Resolving]
  - Nail dystrophy [Recovering/Resolving]
  - Red blood cell count decreased [Recovering/Resolving]
  - Neuropathy peripheral [Recovering/Resolving]

NARRATIVE: CASE EVENT DATE: 20230816
